FAERS Safety Report 7641416-X (Version None)
Quarter: 2011Q3

REPORT INFORMATION
  Report Type: 
  Country: None (occurrence: None)
  Receive Date: 20110728
  Receipt Date: 20110722
  Transmission Date: 20111222
  Serious: Yes (Death)
  Sender: FDA-Public Use
  Company Number: JP-PFIZER INC-2011167593

PATIENT
  Age: 53 Year
  Sex: Female

DRUGS (6)
  1. DEXTROMETHORPHAN HYDROBROMIDE [Concomitant]
     Indication: COUGH
  2. ZITHROMAX [Suspect]
     Dosage: UNK
     Route: 048
     Dates: start: 20110706
  3. METALCAPTASE [Concomitant]
     Indication: COLLAGEN DISORDER
  4. THEO-DUR [Concomitant]
     Indication: COUGH
  5. TADALAFIL [Concomitant]
     Indication: PULMONARY HYPERTENSION
  6. PREDNISOLONE [Concomitant]
     Indication: COLLAGEN DISORDER

REACTIONS (4)
  - DEATH [None]
  - FEELING COLD [None]
  - NAUSEA [None]
  - VOMITING [None]
